FAERS Safety Report 20655553 (Version 1)
Quarter: 2022Q1

REPORT INFORMATION
  Report Type: Spontaneous
  Country: US (occurrence: None)
  Receive Date: 20220330
  Receipt Date: 20220330
  Transmission Date: 20220424
  Serious: No
  Sender: FDA-Public Use
  Company Number: None

PATIENT
  Sex: Female

DRUGS (9)
  1. MYCAPSSA [Suspect]
     Active Substance: OCTREOTIDE
     Indication: Acromegaly
     Dosage: FREQUENCY : TWICE A DAY;?
     Route: 048
  2. MYCAPSSA [Suspect]
     Active Substance: OCTREOTIDE
     Indication: Gigantism
  3. TRIAMTERENE/HYDROCHLOROTH [Concomitant]
  4. SOMAVERT [Concomitant]
     Active Substance: PEGVISOMANT
  5. ADVIL [Concomitant]
     Active Substance: IBUPROFEN
  6. MULTI VITAMIN WITH IRON [Concomitant]
  7. FISH OIL [Concomitant]
     Active Substance: FISH OIL
  8. METFORMIN HYDROCHLORIDE [Concomitant]
     Active Substance: METFORMIN HYDROCHLORIDE
  9. BENICAR [Concomitant]
     Active Substance: OLMESARTAN MEDOXOMIL

REACTIONS (5)
  - Pregnancy [None]
  - Maternal drugs affecting foetus [None]
  - Maternal exposure timing unspecified [None]
  - Therapy interrupted [None]
  - Abortion spontaneous [None]
